FAERS Safety Report 24258741 (Version 4)
Quarter: 2024Q4

REPORT INFORMATION
  Report Type: Spontaneous
  Country: US (occurrence: US)
  Receive Date: 20240828
  Receipt Date: 20241112
  Transmission Date: 20250114
  Serious: No
  Sender: BAYER HEALTHCARE LLC
  Company Number: US-BAYER-2024A121949

PATIENT
  Age: 88 Year
  Sex: Female

DRUGS (2)
  1. CLARITIN LIQUI-GELS [Suspect]
     Active Substance: LORATADINE
     Indication: Upper-airway cough syndrome
     Dosage: 1 DF
     Route: 048
     Dates: start: 20240814, end: 20240822
  2. GAVISCON [Concomitant]
     Active Substance: ALUMINUM HYDROXIDE\MAGNESIUM CARBONATE
     Indication: Rhinorrhoea

REACTIONS (3)
  - Throat irritation [Recovering/Resolving]
  - Drug hypersensitivity [Recovering/Resolving]
  - Suspected product contamination [None]

NARRATIVE: CASE EVENT DATE: 20240823
